FAERS Safety Report 12736707 (Version 1)
Quarter: 2016Q3

REPORT INFORMATION
  Report Type: Spontaneous
  Country: NO (occurrence: NO)
  Receive Date: 20160912
  Receipt Date: 20160912
  Transmission Date: 20161109
  Serious: Yes (Other)
  Sender: FDA-Public Use
  Company Number: NO-PFIZER INC-2016388917

PATIENT
  Age: 77 Year
  Sex: Female

DRUGS (1)
  1. LIGNOCAINE [Suspect]
     Active Substance: LIDOCAINE HYDROCHLORIDE
     Dosage: 50 MG
     Route: 042
     Dates: start: 19680527

REACTIONS (1)
  - Sinus arrest [Recovering/Resolving]
